FAERS Safety Report 7971973-5 (Version None)
Quarter: 2011Q4

REPORT INFORMATION
  Report Type: 
  Country: None (occurrence: None)
  Receive Date: 20111212
  Receipt Date: 20111201
  Transmission Date: 20120403
  Serious: Yes (Other)
  Sender: FDA-Public Use
  Company Number: US-ASTRAZENECA-2011SE73163

PATIENT
  Age: 51 Year
  Sex: Female
  Weight: 136.1 kg

DRUGS (11)
  1. LORATADINE [Concomitant]
     Dosage: 10 DAILY
  2. ASPIRIN [Concomitant]
  3. BENITAR [Concomitant]
  4. SEROQUEL [Suspect]
     Indication: DEPRESSION
     Route: 048
  5. ADVAIR DISKUS 100/50 [Concomitant]
  6. ALBUTEROL [Concomitant]
     Dosage: TWO TIMES A DAY
  7. SEROQUEL [Suspect]
     Route: 048
  8. ACIPHEX [Concomitant]
  9. COLACE [Concomitant]
  10. POTASSIUM CHLORIDE [Concomitant]
  11. COXYCLINE [Concomitant]

REACTIONS (4)
  - JOINT INJURY [None]
  - SYNCOPE [None]
  - MYOCARDIAL INFARCTION [None]
  - FALL [None]
